FAERS Safety Report 13892926 (Version 2)
Quarter: 2017Q4

REPORT INFORMATION
  Report Type: Spontaneous
  Country: US (occurrence: US)
  Receive Date: 20170822
  Receipt Date: 20171016
  Transmission Date: 20180320
  Serious: No
  Sender: FDA-Public Use
  Company Number: US-ASTRAZENECA-2017SE84168

PATIENT
  Sex: Female

DRUGS (1)
  1. SYMBICORT [Suspect]
     Active Substance: BUDESONIDE\FORMOTEROL FUMARATE DIHYDRATE
     Dosage: 160/4.5 MCG TWO INHALATIONS TWICE A DAY
     Route: 055

REACTIONS (3)
  - Drug dose omission [Unknown]
  - Device malfunction [Unknown]
  - Chronic obstructive pulmonary disease [Unknown]
